FAERS Safety Report 13711926 (Version 1)
Quarter: 2017Q3

REPORT INFORMATION
  Report Type: Spontaneous
  Country: US (occurrence: US)
  Receive Date: 20170703
  Receipt Date: 20170703
  Transmission Date: 20171127
  Serious: Yes (Other)
  Sender: FDA-Public Use
  Company Number: None

PATIENT
  Age: 47 Year
  Sex: Female
  Weight: 67.5 kg

DRUGS (4)
  1. TRULICITY [Concomitant]
     Active Substance: DULAGLUTIDE
  2. BYDUREON [Suspect]
     Active Substance: EXENATIDE
     Indication: TYPE 2 DIABETES MELLITUS
     Dosage: ?          OTHER STRENGTH:MG;QUANTITY:1 INJECTION(S);OTHER FREQUENCY:1X WEELY;?
     Route: 058
  3. NAPROXEN. [Concomitant]
     Active Substance: NAPROXEN
  4. DIABETIC TEST STRIPS [Concomitant]

REACTIONS (4)
  - Injection site induration [None]
  - Injection site mass [None]
  - Injection site discolouration [None]
  - Injection site pruritus [None]

NARRATIVE: CASE EVENT DATE: 20170501
